FAERS Safety Report 6408284-5 (Version None)
Quarter: 2009Q4

REPORT INFORMATION
  Report Type: 
  Country: None (occurrence: None)
  Receive Date: 20091021
  Receipt Date: 20091014
  Transmission Date: 20100525
  Serious: Yes (Other)
  Sender: FDA-Public Use
  Company Number: JP-PFIZER INC-2009277560

PATIENT
  Age: 79 Year

DRUGS (5)
  1. ATARAX [Suspect]
     Dosage: 25 MG, SINGLE
     Route: 030
     Dates: start: 20090309, end: 20090309
  2. CONIEL [Concomitant]
     Dosage: UNK
     Route: 048
     Dates: start: 20040501
  3. LIPITOR [Concomitant]
     Dosage: UNK
     Route: 048
     Dates: start: 20040501
  4. FLUITRAN [Concomitant]
     Dosage: UNK
     Route: 048
     Dates: start: 20040501
  5. LOXONIN [Concomitant]
     Indication: PAIN
     Dosage: UNK
     Route: 048
     Dates: start: 20090224

REACTIONS (1)
  - SKIN DISORDER [None]
